FAERS Safety Report 22117929 (Version 1)
Quarter: 2023Q1

REPORT INFORMATION
  Report Type: Spontaneous
  Country: US (occurrence: None)
  Receive Date: 20230321
  Receipt Date: 20230321
  Transmission Date: 20230418
  Serious: No
  Sender: FDA-Public Use
  Company Number: US-ROCHE-3220622

PATIENT
  Age: 81 Year
  Sex: Female

DRUGS (19)
  1. VABYSMO [Suspect]
     Active Substance: FARICIMAB-SVOA
     Indication: Neovascular age-related macular degeneration
     Route: 050
     Dates: start: 20221011
  2. LUCENTIS [Suspect]
     Active Substance: RANIBIZUMAB
     Indication: Product used for unknown indication
     Dosage: 0.5MG X3 AND S/P HALF FLUENCE PDT (02/APR/2019)
     Route: 065
     Dates: start: 20190402
  3. ASPIRIN [Concomitant]
     Active Substance: ASPIRIN
  4. CELEXA [Concomitant]
     Active Substance: CITALOPRAM HYDROBROMIDE
  5. CLOBETASOL [Concomitant]
     Active Substance: CLOBETASOL
     Dosage: CLOBETASOL CREAM PRN FOR ECZEMA
  6. DOXYCYCLINE [Concomitant]
     Active Substance: DOXYCYCLINE
  7. ESTRACE [Concomitant]
     Active Substance: ESTRADIOL
  8. ZETIA [Concomitant]
     Active Substance: EZETIMIBE
  9. TOVIAZ [Concomitant]
     Active Substance: FESOTERODINE FUMARATE
  10. LEVOTHYROXINE [Concomitant]
     Active Substance: LEVOTHYROXINE
  11. LOVASTATIN [Concomitant]
     Active Substance: LOVASTATIN
  12. MILK OF MAGNESIA [Concomitant]
     Active Substance: MAGNESIUM HYDROXIDE
  13. MINOCYCLINE [Concomitant]
     Active Substance: MINOCYCLINE HYDROCHLORIDE
  14. ZOFRAN [Concomitant]
     Active Substance: ONDANSETRON HYDROCHLORIDE
  15. PREVACID [Concomitant]
     Active Substance: LANSOPRAZOLE
  16. ALDACTONE [Concomitant]
     Active Substance: SPIRONOLACTONE
  17. TRAZODONE [Concomitant]
     Active Substance: TRAZODONE HYDROCHLORIDE
  18. EYLEA [Concomitant]
     Active Substance: AFLIBERCEPT
     Dosage: RECURRENT FLUID ON Q8 WEEKS
     Dates: start: 20211005, end: 202209
  19. BEOVU [Concomitant]
     Active Substance: BROLUCIZUMAB-DBLL
     Dosage: FOR RECURRENT FLUID ON Q8 WEEKS
     Dates: start: 20211005, end: 202209

REACTIONS (1)
  - Rash [Not Recovered/Not Resolved]
